FAERS Safety Report 13200174 (Version 4)
Quarter: 2017Q1

REPORT INFORMATION
  Report Type: Spontaneous
  Country: DE (occurrence: DE)
  Receive Date: 20170208
  Receipt Date: 20170309
  Transmission Date: 20170428
  Serious: Yes (Other)
  Sender: FDA-Public Use
  Company Number: DE-BEH-2017077912

PATIENT
  Sex: Female
  Weight: 55 kg

DRUGS (6)
  1. HIZENTRA [Suspect]
     Active Substance: HUMAN IMMUNOGLOBULIN G
     Indication: IMMUNODEFICIENCY COMMON VARIABLE
     Dosage: 0.8 ML/H, UNK, CONTINUOUS SCIG BY PUMP
     Route: 058
  2. AVALOX [Concomitant]
     Active Substance: MOXIFLOXACIN HYDROCHLORIDE
     Route: 042
  3. METRONIDAZOL                       /00012501/ [Concomitant]
     Active Substance: METRONIDAZOLE
     Route: 042
  4. PALLADON [Concomitant]
     Active Substance: HYDROMORPHONE
     Dosage: 64 MG, TID
     Route: 065
  5. METRONIDAZOL                       /00012501/ [Concomitant]
     Active Substance: METRONIDAZOLE
     Route: 048
  6. VITAMIN B12 [Concomitant]
     Active Substance: CYANOCOBALAMIN
     Route: 042

REACTIONS (7)
  - Nausea [Unknown]
  - General physical health deterioration [Unknown]
  - Pulmonary embolism [Unknown]
  - Subclavian vein thrombosis [Unknown]
  - Vomiting [Unknown]
  - Dyspnoea [Unknown]
  - Abnormal loss of weight [Unknown]

NARRATIVE: CASE EVENT DATE: 20160520
